FAERS Safety Report 5368906-7 (Version None)
Quarter: 2007Q2

REPORT INFORMATION
  Report Type: 
  Country: None (occurrence: None)
  Receive Date: 20070625
  Receipt Date: 20061108
  Transmission Date: 20071010
  Serious: No
  Sender: FDA-Public Use
  Company Number: US-ASTRAZENECA-2006UW22536

PATIENT
  Age: 82 Year
  Sex: Female
  Weight: 59 kg

DRUGS (5)
  1. CRESTOR [Suspect]
     Route: 048
     Dates: start: 20061102
  2. ZETIA [Concomitant]
  3. GEMFIBROZIL [Concomitant]
  4. THYROID REPLACEMENT [Concomitant]
  5. HEART MEDICATIONS [Concomitant]

REACTIONS (3)
  - BALANCE DISORDER [None]
  - DIZZINESS [None]
  - VISUAL DISTURBANCE [None]
